FAERS Safety Report 8961111 (Version 3)
Quarter: 2013Q1

REPORT INFORMATION
  Report Type: Spontaneous
  Country: US (occurrence: US)
  Receive Date: 20121213
  Receipt Date: 20130219
  Transmission Date: 20140127
  Serious: Yes (Other)
  Sender: FDA-Public Use
  Company Number: US-BAYER-2012-129840

PATIENT
  Age: 30 Year
  Sex: Female

DRUGS (2)
  1. MIRENA [Suspect]
     Indication: CONTRACEPTION
     Dosage: 20 MCG/24HR, CONT
     Route: 015
     Dates: start: 20120505, end: 20121121
  2. MIRENA [Suspect]
     Indication: MENORRHAGIA

REACTIONS (16)
  - Post procedural haemorrhage [None]
  - Mood altered [None]
  - Acne [None]
  - Device physical property issue [None]
  - Device dislocation [None]
  - Disorientation [None]
  - Metrorrhagia [None]
  - Abnormal behaviour [None]
  - Irritability [None]
  - Anger [None]
  - Tearfulness [Recovering/Resolving]
  - Depressed mood [Recovering/Resolving]
  - Acne [Recovering/Resolving]
  - Menorrhagia [Recovering/Resolving]
  - Hypomenorrhoea [None]
  - Uterine enlargement [None]
